FAERS Safety Report 13292757 (Version 5)
Quarter: 2017Q3

REPORT INFORMATION
  Report Type: Spontaneous
  Country: US (occurrence: US)
  Receive Date: 20170303
  Receipt Date: 20170828
  Transmission Date: 20171127
  Serious: Yes (Congenital Anomaly, Other)
  Sender: FDA-Public Use
  Company Number: PHEH2017US006460

PATIENT
  Sex: Female

DRUGS (2)
  1. ONDANSETRON TEVA [Suspect]
     Active Substance: ONDANSETRON
     Indication: FOETAL EXPOSURE DURING PREGNANCY
     Dosage: UNK
     Route: 064
  2. ONDANSETRON [Suspect]
     Active Substance: ONDANSETRON
     Indication: FOETAL EXPOSURE DURING PREGNANCY
     Route: 064

REACTIONS (26)
  - Haematochezia [Unknown]
  - Thrombocytopenia neonatal [Unknown]
  - Emotional distress [Unknown]
  - Joint swelling [Unknown]
  - Anaemia neonatal [Unknown]
  - Abdominal distension [Unknown]
  - Developmental delay [Unknown]
  - Neonatal respiratory distress syndrome [Unknown]
  - Hyperbilirubinaemia neonatal [Unknown]
  - Small intestinal obstruction [Unknown]
  - Patent ductus arteriosus [Unknown]
  - Plagiocephaly [Unknown]
  - Intracardiac thrombus [Unknown]
  - Pain [Unknown]
  - Premature baby [Unknown]
  - Osteopenia [Unknown]
  - Jaundice cholestatic [Unknown]
  - Foetal exposure during pregnancy [Unknown]
  - Sepsis neonatal [Unknown]
  - Atrial septal defect [Unknown]
  - Anal atresia [Unknown]
  - Failure to thrive [Unknown]
  - Bronchiolitis [Unknown]
  - Low birth weight baby [Unknown]
  - Eczema [Unknown]
  - Anxiety [Unknown]
